FAERS Safety Report 12085318 (Version 2)
Quarter: 2016Q1

REPORT INFORMATION
  Report Type: Spontaneous
  Country: CH (occurrence: CH)
  Receive Date: 20160217
  Receipt Date: 20160224
  Transmission Date: 20160526
  Serious: Yes (Other)
  Sender: FDA-Public Use
  Company Number: CH-TEVA-633778ISR

PATIENT
  Sex: Male

DRUGS (2)
  1. FINASTERID-MEPHA PROCAPIL [Suspect]
     Active Substance: FINASTERIDE
     Route: 065
  2. PROPECIA [Suspect]
     Active Substance: FINASTERIDE
     Dosage: STRENGTH 1 MG
     Route: 065

REACTIONS (2)
  - Liver function test increased [Not Recovered/Not Resolved]
  - Hepatic steatosis [Unknown]
